FAERS Safety Report 25094856 (Version 2)
Quarter: 2025Q2

REPORT INFORMATION
  Report Type: Spontaneous
  Country: PL (occurrence: PL)
  Receive Date: 20250319
  Receipt Date: 20250401
  Transmission Date: 20250716
  Serious: Yes (Death, Hospitalization)
  Sender: MERCK SHARP AND DOHME
  Company Number: PL-009507513-2264626

PATIENT
  Age: 71 Year
  Sex: Female
  Weight: 51 kg

DRUGS (7)
  1. PEMBROLIZUMAB [Suspect]
     Active Substance: PEMBROLIZUMAB
     Indication: Cervix carcinoma
     Route: 042
     Dates: start: 20250110, end: 20250110
  2. PEMBROLIZUMAB [Suspect]
     Active Substance: PEMBROLIZUMAB
     Indication: Cervix carcinoma
     Route: 042
     Dates: start: 20250131, end: 20250131
  3. CARBOPLATIN [Suspect]
     Active Substance: CARBOPLATIN
     Indication: Cervix carcinoma
     Dates: start: 20250110, end: 20250110
  4. CARBOPLATIN [Suspect]
     Active Substance: CARBOPLATIN
     Indication: Cervix carcinoma
     Dates: start: 20250131, end: 20250131
  5. PACLITAXEL [Suspect]
     Active Substance: PACLITAXEL
     Indication: Cervix carcinoma
     Dates: start: 20250110, end: 20250110
  6. PACLITAXEL [Suspect]
     Active Substance: PACLITAXEL
     Indication: Cervix carcinoma
     Dates: start: 20250110, end: 20250110
  7. PACLITAXEL [Suspect]
     Active Substance: PACLITAXEL
     Indication: Cervix carcinoma
     Dates: start: 20250131, end: 20250131

REACTIONS (3)
  - Myositis [Fatal]
  - Myocarditis [Fatal]
  - Hepatitis [Fatal]

NARRATIVE: CASE EVENT DATE: 20250220
